FAERS Safety Report 15386878 (Version 1)
Quarter: 2018Q3

REPORT INFORMATION
  Report Type: Spontaneous
  Country: JP (occurrence: JP)
  Receive Date: 20180914
  Receipt Date: 20180914
  Transmission Date: 20181010
  Serious: Yes (Hospitalization)
  Sender: FDA-Public Use
  Company Number: JP-BAYER-2018-168342

PATIENT
  Age: 54 Year
  Sex: Female

DRUGS (5)
  1. WARFARIN [Interacting]
     Active Substance: WARFARIN
  2. NITRIC ACID [Concomitant]
     Active Substance: NITRIC ACID
  3. BAYASPIRIN 100 MG [Interacting]
     Active Substance: ASPIRIN
     Indication: THROMBOSIS PROPHYLAXIS
  4. PLAVIX [Interacting]
     Active Substance: CLOPIDOGREL BISULFATE
  5. BAYASPIRIN 100 MG [Suspect]
     Active Substance: ASPIRIN
     Indication: THROMBOSIS PROPHYLAXIS
     Route: 048

REACTIONS (5)
  - Labelled drug-drug interaction medication error [None]
  - Faeces discoloured [Unknown]
  - Dizziness [None]
  - Angina pectoris [None]
  - Dyspnoea exertional [None]

NARRATIVE: CASE EVENT DATE: 20160907
